FAERS Safety Report 9888160 (Version 1)
Quarter: 2014Q1

REPORT INFORMATION
  Report Type: Spontaneous
  Country: BR (occurrence: BR)
  Receive Date: 20140211
  Receipt Date: 20140211
  Transmission Date: 20141002
  Serious: Yes (Other)
  Sender: FDA-Public Use
  Company Number: BR-JNJFOC-20140201130

PATIENT
  Age: 49 Year
  Sex: Female

DRUGS (2)
  1. TYLEX [Suspect]
     Indication: PAIN
     Route: 065
     Dates: start: 20140130, end: 20140130
  2. PURAN T4 [Concomitant]
     Indication: HYPOTHYROIDISM
     Route: 065
     Dates: start: 2008

REACTIONS (9)
  - Blood pressure fluctuation [Recovered/Resolved]
  - Morbid thoughts [Recovered/Resolved]
  - Palpitations [Recovered/Resolved]
  - Abdominal pain upper [Recovered/Resolved]
  - Somnolence [Recovered/Resolved]
  - Malaise [Recovered/Resolved]
  - Nausea [Recovered/Resolved]
  - Dizziness [Recovered/Resolved]
  - Hypersensitivity [Not Recovered/Not Resolved]
